FAERS Safety Report 12625966 (Version 1)
Quarter: 2016Q3

REPORT INFORMATION
  Report Type: Spontaneous
  Country: BE (occurrence: BE)
  Receive Date: 20160805
  Receipt Date: 20160805
  Transmission Date: 20161109
  Serious: Yes (Other)
  Sender: FDA-Public Use
  Company Number: PHHY2016BE107333

PATIENT
  Age: 60 Year
  Sex: Female

DRUGS (11)
  1. GLUTATHIONE [Concomitant]
     Active Substance: GLUTATHIONE
     Indication: PRODUCT USED FOR UNKNOWN INDICATION
     Dosage: UNK
     Route: 065
  2. VITAMIN C [Concomitant]
     Active Substance: ASCORBIC ACID
     Indication: PRODUCT USED FOR UNKNOWN INDICATION
     Dosage: UNK
     Route: 065
  3. ARTEMISININ [Suspect]
     Active Substance: DIETARY SUPPLEMENT
     Indication: BABESIOSIS
     Dosage: UNK
     Route: 065
     Dates: start: 2015
  4. VITAMIN A [Concomitant]
     Active Substance: VITAMIN A
     Indication: PRODUCT USED FOR UNKNOWN INDICATION
     Dosage: UNK
     Route: 065
  5. DOXYCYCLINE. [Concomitant]
     Active Substance: DOXYCYCLINE
     Indication: BABESIOSIS
     Dosage: UNK
     Route: 065
     Dates: start: 20150715
  6. DOXYCYCLINE. [Concomitant]
     Active Substance: DOXYCYCLINE
     Indication: PAIN
  7. RIAMET [Suspect]
     Active Substance: ARTEMETHER\LUMEFANTRINE
     Indication: BABESIOSIS
     Dosage: 3 DF, BID
     Route: 048
     Dates: start: 2015, end: 2015
  8. RIAMET [Suspect]
     Active Substance: ARTEMETHER\LUMEFANTRINE
     Dosage: 4 DF, BID
     Route: 048
     Dates: start: 2015, end: 2015
  9. RIAMET [Suspect]
     Active Substance: ARTEMETHER\LUMEFANTRINE
     Dosage: 3 DF, BID
     Route: 048
     Dates: start: 201607, end: 20160802
  10. ORNITHINE [Concomitant]
     Active Substance: ORNITHINE
     Indication: AMMONIA ABNORMAL
     Dosage: UNK
     Route: 065
  11. VITAMIN E [Concomitant]
     Active Substance: .ALPHA.-TOCOPHEROL
     Indication: PRODUCT USED FOR UNKNOWN INDICATION
     Dosage: UNK
     Route: 065

REACTIONS (14)
  - Back pain [Recovered/Resolved]
  - Insomnia [Unknown]
  - Chills [Unknown]
  - Cough [Unknown]
  - Bacterial test positive [Unknown]
  - Abnormal faeces [Unknown]
  - Pain in extremity [Not Recovered/Not Resolved]
  - Arthralgia [Unknown]
  - Peripheral coldness [Unknown]
  - Abdominal pain upper [Unknown]
  - Pain in extremity [Recovered/Resolved]
  - Back pain [Not Recovered/Not Resolved]
  - Neuralgia [Unknown]
  - Product use issue [Unknown]

NARRATIVE: CASE EVENT DATE: 2015
